FAERS Safety Report 6839568-4 (Version None)
Quarter: 2010Q3

REPORT INFORMATION
  Report Type: 
  Country: None (occurrence: None)
  Receive Date: 20100714
  Receipt Date: 20100526
  Transmission Date: 20110219
  Serious: No
  Sender: FDA-Public Use
  Company Number: A0847588A

PATIENT
  Age: 57 Year
  Sex: Female

DRUGS (10)
  1. FLOVENT [Suspect]
     Indication: ASTHMA
     Dosage: 2PUFF TWICE PER DAY
     Route: 055
     Dates: start: 20040501
  2. VENTOLIN HFA [Concomitant]
  3. PREDNISONE [Concomitant]
  4. BENICAR [Concomitant]
  5. SYNTHROID [Concomitant]
  6. ASTELIN [Concomitant]
  7. NASONEX [Concomitant]
  8. HORMONE PATCH [Concomitant]
  9. PROMETRIUM [Concomitant]
  10. NEXIUM [Concomitant]

REACTIONS (5)
  - CHEST DISCOMFORT [None]
  - COUGH [None]
  - DYSPNOEA [None]
  - LUNG DISORDER [None]
  - PRODUCT QUALITY ISSUE [None]
